FAERS Safety Report 23651711 (Version 1)
Quarter: 2024Q1

REPORT INFORMATION
  Report Type: Spontaneous
  Country: US (occurrence: US)
  Receive Date: 20240320
  Receipt Date: 20240320
  Transmission Date: 20240409
  Serious: No
  Sender: FDA-Public Use
  Company Number: US-BMS-IMIDS-REMS_SI-11204225

PATIENT
  Sex: Female

DRUGS (2)
  1. LENALIDOMIDE [Suspect]
     Active Substance: LENALIDOMIDE
     Indication: Product used for unknown indication
  2. LENALIDOMIDE [Suspect]
     Active Substance: LENALIDOMIDE
     Indication: Product used for unknown indication
     Dosage: INSTRUCTED TO TAKE REV 25 MG ONE WEEK ON AND ONE WEEK OFF

REACTIONS (4)
  - Performance status decreased [Unknown]
  - Fatigue [Unknown]
  - Pain in extremity [Unknown]
  - Off label use [Unknown]
